FAERS Safety Report 20859349 (Version 2)
Quarter: 2022Q3

REPORT INFORMATION
  Report Type: Report from Study
  Country: EG (occurrence: EG)
  Receive Date: 20220523
  Receipt Date: 20220801
  Transmission Date: 20221026
  Serious: Yes (Other)
  Sender: FDA-Public Use
  Company Number: EG-NOVARTISPH-NVSC2022EG115353

PATIENT
  Age: 12 Year
  Sex: Female

DRUGS (3)
  1. OMNITROPE [Suspect]
     Active Substance: SOMATROPIN
     Indication: Growth hormone deficiency
     Dosage: 0.5 MG, QD
     Route: 058
     Dates: start: 20180516
  2. OMNITROPE [Suspect]
     Active Substance: SOMATROPIN
     Dosage: 0.6 MG, QD
     Route: 058
  3. OMNITROPE [Suspect]
     Active Substance: SOMATROPIN
     Dosage: 0.7 MG, QD
     Route: 058

REACTIONS (4)
  - Pain in extremity [Recovering/Resolving]
  - Inflammation [Recovering/Resolving]
  - Nasopharyngitis [Recovered/Resolved]
  - Drug ineffective [Not Recovered/Not Resolved]

NARRATIVE: CASE EVENT DATE: 20180516
